FAERS Safety Report 9637813 (Version 5)
Quarter: 2014Q2

REPORT INFORMATION
  Report Type: Spontaneous
  Country: US (occurrence: US)
  Receive Date: 20131022
  Receipt Date: 20140627
  Transmission Date: 20141212
  Serious: Yes (Other)
  Sender: FDA-Public Use
  Company Number: US-PFIZER INC-2013300234

PATIENT
  Age: 80 Year
  Sex: Female
  Weight: 84 kg

DRUGS (10)
  1. LIPITOR [Suspect]
     Indication: LOW DENSITY LIPOPROTEIN INCREASED
     Dosage: 10 MG, DAILY
     Route: 048
     Dates: start: 2007
  2. LIPITOR [Suspect]
     Indication: CARDIOVASCULAR EVENT PROPHYLAXIS
  3. FOSAMAX [Concomitant]
     Indication: OSTEOPOROSIS
     Dosage: 70 MG, DAILY
     Dates: start: 2008
  4. COZAAR [Concomitant]
     Indication: HYPERTENSION
     Dosage: 25 MG, DAILY
     Dates: start: 2008
  5. LISINOPRIL [Concomitant]
     Indication: HYPERTENSION
     Dosage: UNK
     Dates: start: 2008
  6. HYDROCHLOROTHIAZIDE [Concomitant]
     Indication: HYPERTENSION
     Dosage: 25 MG, DAILY
     Dates: start: 2008
  7. COUMADIN [Concomitant]
     Indication: DEEP VEIN THROMBOSIS
     Dosage: 5 MG, DAILY
     Dates: start: 2008
  8. COUMADIN [Concomitant]
     Indication: PULMONARY EMBOLISM
  9. COUMADIN [Concomitant]
     Indication: ANTICOAGULANT THERAPY
  10. TRAMADOL [Concomitant]
     Indication: PAIN
     Dosage: 50 MG, DAILY
     Dates: start: 2008

REACTIONS (2)
  - Type 2 diabetes mellitus [Not Recovered/Not Resolved]
  - Neuropathy peripheral [Unknown]
